FAERS Safety Report 6430309-1 (Version None)
Quarter: 2009Q4

REPORT INFORMATION
  Report Type: 
  Country: None (occurrence: None)
  Receive Date: 20091105
  Receipt Date: 20091105
  Transmission Date: 20100525
  Serious: Yes (Other)
  Sender: FDA-Public Use
  Company Number: None

PATIENT
  Sex: Male
  Weight: 85.2762 kg

DRUGS (4)
  1. ENBREL [Suspect]
     Indication: COLITIS
     Dosage: 50MG SQ WEEKLY
     Route: 058
     Dates: start: 20080801, end: 20090901
  2. ENBREL [Suspect]
     Indication: SPONDYLITIS
     Dosage: 50MG SQ WEEKLY
     Route: 058
     Dates: start: 20080801, end: 20090901
  3. METHOTREXATE SODIUM [Concomitant]
  4. HUMIRA [Concomitant]

REACTIONS (1)
  - BREAST CANCER MALE [None]
